FAERS Safety Report 10647150 (Version 2)
Quarter: 2014Q4

REPORT INFORMATION
  Report Type: Spontaneous
  Country: US (occurrence: US)
  Receive Date: 20141211
  Receipt Date: 20141211
  Transmission Date: 20150529
  Serious: No
  Sender: FDA-Public Use
  Company Number: US-INCYTE CORPORATION-2014IN002201

PATIENT
  Age: 69 Year
  Sex: Female

DRUGS (2)
  1. JAKAFI [Suspect]
     Active Substance: RUXOLITINIB
     Dosage: 15 MG, BID
     Route: 048
     Dates: start: 20140515
  2. JAKAFI [Suspect]
     Active Substance: RUXOLITINIB
     Indication: MYELOFIBROSIS
     Dosage: 15 MG, QD
     Route: 048
     Dates: start: 20140325, end: 2015

REACTIONS (7)
  - Peripheral swelling [Unknown]
  - Urinary tract infection [Unknown]
  - Pruritus [Unknown]
  - Dyspnoea [Unknown]
  - Arthralgia [Unknown]
  - Weight increased [Unknown]
  - Back disorder [Unknown]

NARRATIVE: CASE EVENT DATE: 20140730
